FAERS Safety Report 8388220 (Version 2)
Quarter: 2013Q1

REPORT INFORMATION
  Report Type: Spontaneous
  Country: US (occurrence: US)
  Receive Date: 20120203
  Receipt Date: 20130228
  Transmission Date: 20140127
  Serious: No
  Sender: FDA-Public Use
  Company Number: US-GLAXOSMITHKLINE-A0929306A

PATIENT
  Age: 34 Year
  Sex: Female
  Weight: 65.9 kg

DRUGS (2)
  1. LAMOTRIGINE [Suspect]
     Indication: BIPOLAR DISORDER
     Dosage: 150MG TWICE PER DAY
     Route: 048
     Dates: start: 2005
  2. FOLATE [Concomitant]

REACTIONS (2)
  - Live birth [Unknown]
  - Exposure during pregnancy [Unknown]
